FAERS Safety Report 25731446 (Version 1)
Quarter: 2025Q3

REPORT INFORMATION
  Report Type: Spontaneous
  Country: CN (occurrence: CN)
  Receive Date: 20250827
  Receipt Date: 20250827
  Transmission Date: 20251021
  Serious: Yes (Hospitalization, Other)
  Sender: PFIZER
  Company Number: CN-PFIZER INC-PV202500102871

PATIENT
  Age: 70 Year
  Sex: Male
  Weight: 70 kg

DRUGS (15)
  1. METHOTREXATE SODIUM [Suspect]
     Active Substance: METHOTREXATE SODIUM
     Indication: Burkitt^s lymphoma
     Dosage: 1300 MG, 1X/DAY
     Route: 041
     Dates: start: 20250813, end: 20250813
  2. METHOTREXATE SODIUM [Suspect]
     Active Substance: METHOTREXATE SODIUM
     Indication: Burkitt^s lymphoma
     Dosage: 300 MG, 1X/DAY
     Route: 041
     Dates: start: 20250813, end: 20250813
  3. CYTARABINE [Suspect]
     Active Substance: CYTARABINE
     Indication: Burkitt^s lymphoma
     Dosage: 1.6 G, 2X/DAY
     Route: 041
     Dates: start: 20250814, end: 20250815
  4. RITUXIMAB [Concomitant]
     Active Substance: RITUXIMAB
     Indication: Burkitt^s lymphoma
     Dosage: 500 MG, 1X/DAY
     Route: 041
     Dates: start: 20250812, end: 20250812
  5. RITUXIMAB [Concomitant]
     Active Substance: RITUXIMAB
     Indication: Burkitt^s lymphoma
     Dosage: 100 MG, 1X/DAY
     Route: 041
     Dates: start: 20250812, end: 20250812
  6. DEXAMETHASONE SODIUM PHOSPHATE [Concomitant]
     Active Substance: DEXAMETHASONE SODIUM PHOSPHATE
     Indication: Allergy prophylaxis
     Dosage: 10 MG, 1X/DAY
     Route: 041
     Dates: start: 20250812, end: 20250812
  7. PHOSPHOLIPID [Concomitant]
     Active Substance: PHOSPHOLIPID
     Indication: Hepatobiliary disorder prophylaxis
     Dosage: 10 ML, 1X/DAY
     Route: 042
     Dates: start: 20250812, end: 20250823
  8. AKYNZEO (NETUPITANT\PALONOSETRON HYDROCHLORIDE) [Concomitant]
     Active Substance: NETUPITANT\PALONOSETRON HYDROCHLORIDE
     Indication: Prophylaxis of nausea and vomiting
     Dosage: 0.3 G, 1X/DAY
     Route: 048
     Dates: start: 20250812, end: 20250812
  9. SINGULAIR [Concomitant]
     Active Substance: MONTELUKAST SODIUM
     Indication: Asthma prophylaxis
     Dosage: 10 MG, 1X/DAY
     Route: 048
     Dates: start: 20250812, end: 20250812
  10. TORSEMIDE [Concomitant]
     Active Substance: TORSEMIDE
     Indication: Adjuvant therapy
     Dosage: 10 MG, 1X/DAY
     Route: 042
     Dates: start: 20250812, end: 20250817
  11. LEUCOVORIN CALCIUM [Concomitant]
     Active Substance: LEUCOVORIN CALCIUM
     Indication: Drug toxicity prophylaxis
     Dosage: 35 MG, 4X/DAY
     Route: 030
     Dates: start: 20250814, end: 20250815
  12. OMEPRAZOLE [Concomitant]
     Active Substance: OMEPRAZOLE
     Indication: Antacid therapy
     Dosage: 40 MG, 1X/DAY
     Route: 041
     Dates: start: 20250812, end: 20250815
  13. PROMETHAZINE HYDROCHLORIDE [Concomitant]
     Active Substance: PROMETHAZINE HYDROCHLORIDE
     Indication: Allergy prophylaxis
     Dosage: 25 MG, 1X/DAY
     Route: 030
     Dates: start: 20250812, end: 20250812
  14. SODIUM BICARBONATE [Concomitant]
     Active Substance: SODIUM BICARBONATE
     Indication: Urine alkalinisation therapy
     Dosage: 3 G, 1X/DAY
     Route: 041
     Dates: start: 20250812, end: 20250817
  15. BENZBROMARONE [Concomitant]
     Active Substance: BENZBROMARONE
     Indication: Blood uric acid increased
     Dosage: 50 MG, 1X/DAY
     Route: 048
     Dates: start: 20250812, end: 20250824

REACTIONS (1)
  - Acute kidney injury [Recovering/Resolving]

NARRATIVE: CASE EVENT DATE: 20250815
